FAERS Safety Report 9272646 (Version 1)
Quarter: 2013Q2

REPORT INFORMATION
  Report Type: Other
  Country: KR (occurrence: KR)
  Receive Date: 20130506
  Receipt Date: 20130506
  Transmission Date: 20140414
  Serious: Yes (Other)
  Sender: FDA-Public Use
  Company Number: KR-BRISTOL-MYERS SQUIBB COMPANY-18857052

PATIENT
  Age: 60 Year
  Sex: Female

DRUGS (1)
  1. METFORMIN HCL [Suspect]

REACTIONS (6)
  - Hydronephrosis [Unknown]
  - Urinary tract infection [Unknown]
  - Lactic acidosis [Unknown]
  - Azotaemia [Unknown]
  - Leukocytosis [Unknown]
  - Pyrexia [Unknown]
